FAERS Safety Report 10474476 (Version 1)
Quarter: 2014Q3

REPORT INFORMATION
  Report Type: Spontaneous
  Country: US (occurrence: US)
  Receive Date: 20140924
  Receipt Date: 20140924
  Transmission Date: 20150326
  Serious: Yes (Death, Life-Threatening, Hospitalization, Other)
  Sender: FDA-Public Use
  Company Number: US-ELI_LILLY_AND_COMPANY-US201409007779

PATIENT
  Age: 60 Year
  Sex: Male

DRUGS (6)
  1. HUMALOG [Suspect]
     Active Substance: INSULIN LISPRO
     Indication: TYPE 2 DIABETES MELLITUS
     Dosage: UNK, PRN
     Route: 065
     Dates: start: 2007
  2. COUMADIN [Concomitant]
     Active Substance: WARFARIN SODIUM
  3. IBUPROFEN. [Concomitant]
     Active Substance: IBUPROFEN
  4. ALEVE [Concomitant]
     Active Substance: NAPROXEN SODIUM
  5. LANTUS [Concomitant]
     Active Substance: INSULIN GLARGINE
  6. ASPIRIN. [Concomitant]
     Active Substance: ASPIRIN

REACTIONS (7)
  - Oesophageal haemorrhage [Unknown]
  - Hepatic cancer [Unknown]
  - Apparent death [Recovered/Resolved]
  - Oesophageal perforation [Unknown]
  - Hepatic neoplasm [Recovered/Resolved]
  - Hepatic cirrhosis [Unknown]
  - Gout [Unknown]

NARRATIVE: CASE EVENT DATE: 2010
